FAERS Safety Report 4539490-2 (Version None)
Quarter: 2004Q4

REPORT INFORMATION
  Report Type: 
  Country: None (occurrence: None)
  Receive Date: 20041222
  Receipt Date: 20041210
  Transmission Date: 20050328
  Serious: Yes (Other)
  Sender: FDA-Public Use
  Company Number: 2004-0007628

PATIENT
  Age: 41 Year
  Sex: Female
  Weight: 57 kg

DRUGS (2)
  1. VIREAD [Suspect]
     Indication: HIV INFECTION
     Dosage: 300 MG, 1 IN 1 D, ORAL
     Route: 048
     Dates: start: 20031201, end: 20041004
  2. SUSTIVA [Suspect]
     Indication: HIV INFECTION
     Dosage: 600 MG, 1 IN 1 D, ORAL
     Route: 048
     Dates: start: 20020601, end: 20041004

REACTIONS (1)
  - HEPATITIS ACUTE [None]
